FAERS Safety Report 12163809 (Version 1)
Quarter: 2016Q1

REPORT INFORMATION
  Report Type: Spontaneous
  Country: TR (occurrence: TR)
  Receive Date: 20160309
  Receipt Date: 20160309
  Transmission Date: 20160526
  Serious: Yes (Other)
  Sender: FDA-Public Use
  Company Number: TR-EISAI MEDICAL RESEARCH-EC-2016-014833

PATIENT
  Age: 12 Year
  Sex: Male

DRUGS (6)
  1. RUFINAMIDE [Suspect]
     Active Substance: RUFINAMIDE
     Route: 048
  2. LEVETIRACETAM. [Concomitant]
     Active Substance: LEVETIRACETAM
     Indication: EPILEPSY
     Route: 065
  3. CLOBAZAM [Concomitant]
     Active Substance: CLOBAZAM
     Indication: EPILEPSY
     Route: 065
  4. VALPROIC ACID. [Concomitant]
     Active Substance: VALPROIC ACID
     Indication: EPILEPSY
     Route: 065
  5. RUFINAMIDE [Suspect]
     Active Substance: RUFINAMIDE
     Indication: SEIZURE
     Route: 048
  6. RUFINAMIDE [Suspect]
     Active Substance: RUFINAMIDE
     Dosage: TITRATED WITH AN INCREMENT OF 50 MG EVERY 3 DAYS UP TO 250 MG/DAY OVER 2 WEEKS
     Route: 048

REACTIONS (2)
  - Off label use [Recovering/Resolving]
  - Seizure [Recovering/Resolving]
